FAERS Safety Report 22529640 (Version 1)
Quarter: 2023Q2

REPORT INFORMATION
  Report Type: Spontaneous
  Country: US (occurrence: US)
  Receive Date: 20230607
  Receipt Date: 20230607
  Transmission Date: 20230722
  Serious: Yes (Other)
  Sender: FDA-Public Use
  Company Number: US-MYLANLABS-2023M1056507

PATIENT
  Age: 63 Year
  Sex: Male

DRUGS (2)
  1. ESTRADIOL [Suspect]
     Active Substance: ESTRADIOL
     Indication: Transgender hormonal therapy
     Dosage: 2 MILLIGRAM, QD
     Route: 065
  2. ESTROGENS [Suspect]
     Active Substance: ESTROGENS
     Indication: Transgender hormonal therapy
     Dosage: UNK
     Route: 065

REACTIONS (1)
  - Hepatic cirrhosis [Recovered/Resolved]
